FAERS Safety Report 14461073 (Version 3)
Quarter: 2018Q2

REPORT INFORMATION
  Report Type: Spontaneous
  Country: US (occurrence: US)
  Receive Date: 20180130
  Receipt Date: 20180404
  Transmission Date: 20180711
  Serious: No
  Sender: FDA-Public Use
  Company Number: US-BAYER-2018-018356

PATIENT
  Age: 77 Year
  Sex: Female
  Weight: 47.98 kg

DRUGS (2)
  1. MIRALAX [Suspect]
     Active Substance: POLYETHYLENE GLYCOL 3350
     Indication: CONSTIPATION
     Dosage: 1 DF, UNK
     Dates: start: 20180211, end: 20180211
  2. MIRALAX [Suspect]
     Active Substance: POLYETHYLENE GLYCOL 3350
     Indication: GASTROINTESTINAL DISORDER
     Dosage: 0.5 DF, PRN 1/2 DOSE AS NEEDED DOSE
     Route: 048
     Dates: start: 20180111

REACTIONS (7)
  - Inappropriate schedule of drug administration [Unknown]
  - Underdose [Unknown]
  - Therapeutic response shortened [Not Recovered/Not Resolved]
  - Diarrhoea [Recovered/Resolved]
  - Prescribed underdose [Unknown]
  - Underdose [Unknown]
  - Product use in unapproved indication [Unknown]

NARRATIVE: CASE EVENT DATE: 20180111
